FAERS Safety Report 12993079 (Version 3)
Quarter: 2016Q4

REPORT INFORMATION
  Report Type: Spontaneous
  Country: US (occurrence: US)
  Receive Date: 20161202
  Receipt Date: 20161205
  Transmission Date: 20170207
  Serious: Yes (Other)
  Sender: FDA-Public Use
  Company Number: US-AUROBINDO-AUR-APL-2016-14577

PATIENT
  Age: 46 Year
  Sex: Female

DRUGS (3)
  1. METFORMIN 500MG [Suspect]
     Active Substance: METFORMIN HYDROCHLORIDE
     Indication: TYPE 2 DIABETES MELLITUS
     Dosage: 850 MG, TWO TIMES A DAY
     Route: 065
  2. METFORMIN 500MG [Suspect]
     Active Substance: METFORMIN HYDROCHLORIDE
     Indication: HYPERGLYCAEMIA
     Dosage: 500 MG, TWO TIMES A DAY
     Route: 065
  3. METFORMIN 500MG [Suspect]
     Active Substance: METFORMIN HYDROCHLORIDE
     Dosage: 1000 MG, TWO TIMES A DAY
     Route: 065

REACTIONS (2)
  - Drug-induced liver injury [Recovering/Resolving]
  - Autoimmune hepatitis [Recovering/Resolving]
